FAERS Safety Report 11342361 (Version 1)
Quarter: 2015Q3

REPORT INFORMATION
  Report Type: Spontaneous
  Country: US (occurrence: US)
  Receive Date: 20150805
  Receipt Date: 20150805
  Transmission Date: 20151125
  Serious: Yes (Death, Other)
  Sender: FDA-Public Use
  Company Number: US-UNITED THERAPEUTICS-UNT-2015-008425

PATIENT
  Age: 71 Year
  Sex: Male
  Weight: 108.39 kg

DRUGS (3)
  1. ORENITRAM [Suspect]
     Active Substance: TREPROSTINIL
     Indication: PULMONARY ARTERIAL HYPERTENSION
     Dosage: 1 MG, BID
     Route: 048
     Dates: start: 20150302
  2. ORENITRAM [Suspect]
     Active Substance: TREPROSTINIL
     Dosage: 1.125 MG, BID
     Route: 048
  3. ORENITRAM [Suspect]
     Active Substance: TREPROSTINIL
     Dosage: UNK

REACTIONS (3)
  - Death [Fatal]
  - Urinary tract infection [Unknown]
  - Pericardial effusion [Unknown]

NARRATIVE: CASE EVENT DATE: 20150709
